FAERS Safety Report 8475480-5 (Version None)
Quarter: 2012Q2

REPORT INFORMATION
  Report Type: 
  Country: None (occurrence: None)
  Receive Date: 20120628
  Receipt Date: 20120620
  Transmission Date: 20120825
  Serious: Yes (Hospitalization, Other)
  Sender: FDA-Public Use
  Company Number: US-ABBOTT-11P-163-0734901-00

PATIENT
  Sex: Female
  Weight: 63.56 kg

DRUGS (37)
  1. CIPROFLOXACIN HYDROCHLORIDE [Suspect]
     Indication: PRODUCT USED FOR UNKNOWN INDICATION
     Route: 065
  2. NOPALEA (PLANT ALKALOIDS AND OTHER NATURAL PRODUCTS) [Suspect]
     Indication: ARTHRALGIA
     Route: 065
     Dates: start: 20100101
  3. FUROSEMIDE [Suspect]
     Indication: PRODUCT USED FOR UNKNOWN INDICATION
     Route: 065
  4. AMLODIPINE BESYLATE [Suspect]
     Route: 048
     Dates: start: 19970101
  5. NEBIVOLOL HYDROCHLORIDE [Suspect]
     Indication: PRODUCT USED FOR UNKNOWN INDICATION
     Route: 065
  6. DEPAKOTE [Suspect]
     Indication: CONVULSION
     Route: 065
     Dates: start: 19950101, end: 20040101
  7. HYDROCHLOROTHIAZIDE [Suspect]
     Indication: PRODUCT USED FOR UNKNOWN INDICATION
     Route: 065
     Dates: start: 20110307
  8. AVAPRO [Suspect]
     Indication: HYPERTENSION
     Route: 065
  9. LEVOTHYROXINE SODIUM [Concomitant]
     Indication: PRODUCT USED FOR UNKNOWN INDICATION
  10. CLONIDINE [Concomitant]
     Indication: HYPERTENSION
  11. ATACAND [Suspect]
     Indication: RENAL DISORDER
     Dosage: 32MG DAILY
     Route: 048
     Dates: start: 19950101
  12. ATACAND [Suspect]
     Route: 048
     Dates: start: 20110901
  13. BENICAR [Suspect]
     Indication: HYPERTENSION
     Dosage: FILM-COATED
     Route: 048
     Dates: start: 20070101
  14. LISINOPRIL [Suspect]
     Indication: PRODUCT USED FOR UNKNOWN INDICATION
     Route: 048
  15. METOPROLOL SUCCINATE [Concomitant]
     Indication: PRODUCT USED FOR UNKNOWN INDICATION
  16. NOPALEA (PLANT ALKALOIDS AND OTHER NATURAL PRODUCTS) [Suspect]
     Indication: BLOOD TRIGLYCERIDES INCREASED
  17. FUROSEMIDE [Suspect]
  18. AMLODIPINE BESYLATE [Suspect]
     Route: 048
     Dates: start: 20100101
  19. CARDIZEM [Suspect]
     Indication: PRODUCT USED FOR UNKNOWN INDICATION
     Dosage: EXTENDED RELEASE
     Route: 065
  20. REGLAN [Suspect]
     Indication: PRODUCT USED FOR UNKNOWN INDICATION
  21. AMLODIPINE BESYLATE [Suspect]
     Route: 048
     Dates: start: 20100719, end: 20100721
  22. XANAX [Suspect]
     Indication: PRODUCT USED FOR UNKNOWN INDICATION
     Route: 048
  23. CLONIDINE [Concomitant]
     Indication: BLOOD PRESSURE
     Route: 048
  24. PHENYTOIN [Suspect]
     Indication: CONVULSION
     Route: 065
     Dates: start: 19950101
  25. TOPROL-XL [Suspect]
     Indication: FLUSHING
  26. AMLODIPINE BESYLATE [Suspect]
     Route: 048
  27. AMLODIPINE BESYLATE [Suspect]
     Route: 048
     Dates: start: 20100722
  28. MACROBID [Suspect]
     Indication: PRODUCT USED FOR UNKNOWN INDICATION
     Route: 065
  29. VALSARTAN [Suspect]
     Indication: PRODUCT USED FOR UNKNOWN INDICATION
     Route: 065
  30. LIDOCAINE [Suspect]
     Indication: INGROWING NAIL
     Route: 065
     Dates: start: 20100513, end: 20100513
  31. LIDOCAINE [Suspect]
     Indication: ANAESTHESIA
  32. TOPROL-XL [Suspect]
     Indication: HEART RATE ABNORMAL
     Dosage: 25MG DAILY
     Route: 048
  33. LOSARTAN POTASSIUM [Suspect]
     Indication: PRODUCT USED FOR UNKNOWN INDICATION
     Route: 065
  34. BACTRIM [Suspect]
     Indication: PRODUCT USED FOR UNKNOWN INDICATION
     Route: 065
  35. ATACAND [Suspect]
  36. LEVAQUIN [Suspect]
     Indication: PRODUCT USED FOR UNKNOWN INDICATION
     Route: 065
  37. AMLODIPINE BESYLATE [Suspect]
     Indication: HYPERTENSION
     Route: 048
     Dates: start: 19940101

REACTIONS (36)
  - CHOLECYSTECTOMY [None]
  - HYPOAESTHESIA [None]
  - BLOOD COUNT ABNORMAL [None]
  - DIZZINESS [None]
  - DRUG INEFFECTIVE [None]
  - ANAEMIA [None]
  - GASTRIC DISORDER [None]
  - CYSTITIS [None]
  - MICTURITION FREQUENCY DECREASED [None]
  - URINARY INCONTINENCE [None]
  - NERVOUSNESS [None]
  - BURNING SENSATION [None]
  - LOSS OF CONSCIOUSNESS [None]
  - LUNG NEOPLASM [None]
  - GALLBLADDER DISORDER [None]
  - KIDNEY INFECTION [None]
  - CONVULSION [None]
  - BLOOD PRESSURE INCREASED [None]
  - ARTERIOGRAM CORONARY ABNORMAL [None]
  - TOE OPERATION [None]
  - ARTERIAL OCCLUSIVE DISEASE [None]
  - WEIGHT DECREASED [None]
  - PALPITATIONS [None]
  - DRUG INTERACTION [None]
  - FULL BLOOD COUNT DECREASED [None]
  - HAEMOGLOBIN DECREASED [None]
  - FEELING HOT [None]
  - ABDOMINAL PAIN [None]
  - INGROWING NAIL [None]
  - HEADACHE [None]
  - CARBUNCLE [None]
  - FALL [None]
  - PLATELET COUNT DECREASED [None]
  - BLOOD TRIGLYCERIDES INCREASED [None]
  - HYPERTENSION [None]
  - INSOMNIA [None]
